FAERS Safety Report 7022812-0 (Version None)
Quarter: 2010Q3

REPORT INFORMATION
  Report Type: 
  Country: None (occurrence: None)
  Receive Date: 20100930
  Receipt Date: 20100921
  Transmission Date: 20110219
  Serious: Yes (Other)
  Sender: FDA-Public Use
  Company Number: A0884070A

PATIENT
  Age: 36 Year
  Sex: Female

DRUGS (2)
  1. AVAMYS [Suspect]
     Indication: RHINITIS
     Dosage: 1SPR PER DAY
     Route: 045
  2. FLIXOTIDE [Suspect]
     Indication: ASTHMA
     Dosage: 1PUFF PER DAY
     Route: 055

REACTIONS (2)
  - EPISTAXIS [None]
  - MUSCLE ATROPHY [None]
